FAERS Safety Report 8388772-5 (Version None)
Quarter: 2012Q2

REPORT INFORMATION
  Report Type: 
  Country: None (occurrence: None)
  Receive Date: 20120528
  Receipt Date: 20120515
  Transmission Date: 20120825
  Serious: Yes (Other)
  Sender: FDA-Public Use
  Company Number: FR-BRISTOL-MYERS SQUIBB COMPANY-16628927

PATIENT
  Age: 1 Day
  Sex: Female
  Weight: 1 kg

DRUGS (3)
  1. CISPLATIN [Suspect]
     Route: 064
  2. BLEOMYCIN SULFATE [Suspect]
     Dosage: 3 DAYS
     Route: 064
  3. ETOPOSIDE [Suspect]
     Route: 064

REACTIONS (2)
  - DEAFNESS [None]
  - PREMATURE BABY [None]
